FAERS Safety Report 8242746-3 (Version None)
Quarter: 2012Q1

REPORT INFORMATION
  Report Type: 
  Country: None (occurrence: None)
  Receive Date: 20120329
  Receipt Date: 20120326
  Transmission Date: 20120608
  Serious: No
  Sender: FDA-Public Use
  Company Number: US-TEVA-330113USA

PATIENT

DRUGS (1)
  1. PROAIR HFA [Suspect]
     Dosage: 360 MICROGRAM; 2 PUFFS

REACTIONS (1)
  - TREMOR [None]
